FAERS Safety Report 10078392 (Version 2)
Quarter: 2014Q4

REPORT INFORMATION
  Report Type: Spontaneous
  Country: US (occurrence: None)
  Receive Date: 20140401
  Receipt Date: 20141128
  Transmission Date: 20150528
  Serious: Yes (Death)
  Sender: FDA-Public Use
  Company Number: 2014-US-003365

PATIENT
  Age: 86 Year
  Sex: Male

DRUGS (1)
  1. XYREM [Suspect]
     Active Substance: SODIUM OXYBATE
     Indication: PRODUCT USED FOR UNKNOWN INDICATION
     Route: 048
     Dates: start: 200212

REACTIONS (3)
  - Gastrointestinal haemorrhage [None]
  - Death [None]
  - Cardiac failure congestive [None]

NARRATIVE: CASE EVENT DATE: 20140219
